FAERS Safety Report 8226308-X (Version None)
Quarter: 2012Q1

REPORT INFORMATION
  Report Type: 
  Country: None (occurrence: None)
  Receive Date: 20120321
  Receipt Date: 20120316
  Transmission Date: 20120608
  Serious: Yes (Other)
  Sender: FDA-Public Use
  Company Number: BR-MERCK-1203BRA00039

PATIENT
  Age: 79 Year
  Sex: Female
  Weight: 100 kg

DRUGS (7)
  1. PROPRANOLOL HYDROCHLORIDE [Concomitant]
     Indication: CARDIAC DISORDER
     Route: 048
  2. SINEMET [Suspect]
     Indication: PARKINSON'S DISEASE
     Route: 065
     Dates: start: 20050101, end: 20110101
  3. ALPRAZOLAM [Concomitant]
     Route: 048
  4. CILAZAPRIL [Concomitant]
     Indication: CARDIAC DISORDER
     Route: 048
  5. BROMAZEPAM [Concomitant]
     Indication: CARDIAC DISORDER
     Route: 048
  6. SINEMET [Suspect]
     Route: 065
     Dates: start: 20050101, end: 20110101
  7. INDAPAMIDE [Concomitant]
     Indication: HYPERTENSION
     Route: 065

REACTIONS (3)
  - DYSPNOEA [None]
  - ABASIA [None]
  - CATARACT [None]
